FAERS Safety Report 19620294 (Version 4)
Quarter: 2021Q4

REPORT INFORMATION
  Report Type: Report from Study
  Country: ES (occurrence: None)
  Receive Date: 20210728
  Receipt Date: 20211117
  Transmission Date: 20220303
  Serious: Yes (Hospitalization)
  Sender: FDA-Public Use
  Company Number: ES-ROCHE-2869272

PATIENT
  Age: 83 Year
  Sex: Female
  Weight: 42 kg

DRUGS (7)
  1. ATEZOLIZUMAB [Suspect]
     Active Substance: ATEZOLIZUMAB
     Indication: Triple negative breast cancer
     Dosage: ON 25/JUN/2021, SHE RECEIVED LAST DOSE OF ATEZOLIZUMAB PRIOR TO ONSET OF SERIOUS ADVERSE EVENT.?THRE
     Route: 041
     Dates: start: 20210415
  2. BEVACIZUMAB [Suspect]
     Active Substance: BEVACIZUMAB
     Indication: Triple negative breast cancer
     Dosage: ON 25/JUN/2021, SHE RECEIVED LAST DOSE OF BEVACIZUMAB PRIOR TO ONSET OF SERIOUS ADVERSE EVENT.?THREE
     Route: 042
     Dates: start: 20210415
  3. PACLITAXEL [Suspect]
     Active Substance: PACLITAXEL
     Indication: Triple negative breast cancer
     Dosage: ON 25/JUN/2021, SHE RECEIVED LAST DOSE OF PACLITAXEL PRIOR TO ONSET OF SERIOUS ADVERSE EVENT.?THREE
     Route: 042
     Dates: start: 20210415
  4. FERRUM (UNK INGREDIENTS) [Concomitant]
     Indication: Prophylaxis
     Dosage: 1000 UI
     Route: 042
     Dates: start: 20210713, end: 20210714
  5. FAMOTIDINE [Concomitant]
     Active Substance: FAMOTIDINE
     Indication: Prophylaxis
     Route: 048
     Dates: start: 20210712
  6. ACETAMINOPHEN [Concomitant]
     Active Substance: ACETAMINOPHEN
     Indication: Prophylaxis
     Route: 048
     Dates: start: 20210608
  7. ALPELISIB [Concomitant]
     Active Substance: ALPELISIB

REACTIONS (1)
  - Acute kidney injury [Recovered/Resolved]

NARRATIVE: CASE EVENT DATE: 20210708
